FAERS Safety Report 9527126 (Version 2)
Quarter: 2013Q4

REPORT INFORMATION
  Report Type: Spontaneous
  Country: AU (occurrence: AU)
  Receive Date: 20130916
  Receipt Date: 20131031
  Transmission Date: 20140711
  Serious: Yes (Other)
  Sender: FDA-Public Use
  Company Number: AU-B.I. PHARMACEUTICALS,INC./RIDGEFIELD-2013-BI-28756YA

PATIENT
  Sex: Male

DRUGS (2)
  1. TAMSULOSINA [Suspect]
     Route: 065
  2. CIALIS (TADALAFIL) [Suspect]
     Route: 065

REACTIONS (2)
  - Vasodilatation [Unknown]
  - Circulatory collapse [Unknown]
